FAERS Safety Report 7767140-0 (Version None)
Quarter: 2011Q3

REPORT INFORMATION
  Report Type: 
  Country: None (occurrence: None)
  Receive Date: 20110922
  Receipt Date: 20110208
  Transmission Date: 20111222
  Serious: No
  Sender: FDA-Public Use
  Company Number: US-ASTRAZENECA-2009SE13646

PATIENT
  Age: 78 Year
  Sex: Female
  Weight: 58.1 kg

DRUGS (11)
  1. SEROQUEL [Suspect]
     Indication: SLEEP DISORDER
     Route: 048
  2. SEROQUEL [Suspect]
     Indication: MAJOR DEPRESSION
     Route: 048
  3. SEROQUEL [Suspect]
     Dosage: HALF TABLET OF 50 MG SEROQUEL AT BED TIME AND OTHER HALF TABLET AT 3 AM
     Route: 048
  4. SEROQUEL [Suspect]
     Dosage: HALF TABLET OF 50 MG SEROQUEL AT BED TIME AND OTHER HALF TABLET AT 3 AM
     Route: 048
  5. LEVOTHYROXINE SODIUM [Concomitant]
     Indication: THYROID DISORDER
  6. CALCIUM CARBONATE [Concomitant]
  7. ATENOLOL [Concomitant]
     Indication: HYPERTENSION
  8. SEROQUEL [Suspect]
     Route: 048
     Dates: start: 19980101
  9. LISINOPRIL [Concomitant]
     Indication: HYPERTENSION
  10. SEROQUEL [Suspect]
     Route: 048
     Dates: start: 19980101
  11. M.V.I. [Concomitant]

REACTIONS (9)
  - MEMORY IMPAIRMENT [None]
  - DISTURBANCE IN ATTENTION [None]
  - SLEEP DISORDER [None]
  - DISORIENTATION [None]
  - FEELING ABNORMAL [None]
  - DRUG INEFFECTIVE [None]
  - CONFUSIONAL STATE [None]
  - AMNESIA [None]
  - WRONG TECHNIQUE IN DRUG USAGE PROCESS [None]
